FAERS Safety Report 13324257 (Version 1)
Quarter: 2017Q1

REPORT INFORMATION
  Report Type: Report from Study
  Country: None (occurrence: US)
  Receive Date: 20170310
  Receipt Date: 20170310
  Transmission Date: 20170428
  Serious: Yes (Other)
  Sender: FDA-Public Use
  Company Number: US-ABBVIE-17P-163-1897837-00

PATIENT
  Sex: Female

DRUGS (1)
  1. LUPRON DEPOT [Suspect]
     Active Substance: LEUPROLIDE ACETATE
     Indication: ENDOMETRIOSIS
     Route: 030

REACTIONS (6)
  - Endometrial ablation [Unknown]
  - Exposure during pregnancy [Unknown]
  - Dermoid cyst [Unknown]
  - Menorrhagia [Unknown]
  - Pain [Unknown]
  - Hysterectomy [Unknown]

NARRATIVE: CASE EVENT DATE: 2000
